FAERS Safety Report 6967449-4 (Version None)
Quarter: 2010Q3

REPORT INFORMATION
  Report Type: 
  Country: None (occurrence: None)
  Receive Date: 20100907
  Receipt Date: 20100902
  Transmission Date: 20110219
  Serious: Yes (Death, Other)
  Sender: FDA-Public Use
  Company Number: PHHY2010MX58137

PATIENT
  Sex: Female

DRUGS (1)
  1. GLEEVEC [Suspect]
     Indication: ACUTE LYMPHOCYTIC LEUKAEMIA
     Dosage: 600 MG, DAILY
     Route: 048
     Dates: start: 20090618, end: 20100613

REACTIONS (2)
  - ACUTE LYMPHOCYTIC LEUKAEMIA RECURRENT [None]
  - BONE MARROW TRANSPLANT [None]
